FAERS Safety Report 11630128 (Version 1)
Quarter: 2015Q4

REPORT INFORMATION
  Report Type: Spontaneous
  Country: US (occurrence: US)
  Receive Date: 20151014
  Receipt Date: 20151014
  Transmission Date: 20160304
  Serious: No
  Sender: FDA-Public Use
  Company Number: US-INDIVIOR-RB-080464-2015

PATIENT
  Sex: Female

DRUGS (2)
  1. SUBOXONE [Suspect]
     Active Substance: BUPRENORPHINE HYDROCHLORIDE\NALOXONE HYDROCHLORIDE
     Indication: PAIN
     Dosage: 8 MG, BID
     Route: 060
     Dates: start: 2010
  2. SUBOXONE [Suspect]
     Active Substance: BUPRENORPHINE HYDROCHLORIDE\NALOXONE HYDROCHLORIDE
     Dosage: CUT HER FILM INTO TINY PIECES AND SHE TAKES ONE PIECE EVERY 5 DAYS
     Route: 060

REACTIONS (5)
  - Therapeutic response unexpected [Not Recovered/Not Resolved]
  - Energy increased [Not Recovered/Not Resolved]
  - Off label use [Not Recovered/Not Resolved]
  - Intentional product misuse [Recovered/Resolved]
  - Product preparation error [Not Recovered/Not Resolved]

NARRATIVE: CASE EVENT DATE: 2010
